FAERS Safety Report 10557922 (Version 1)
Quarter: 2014Q4

REPORT INFORMATION
  Report Type: Spontaneous
  Country: US (occurrence: US)
  Receive Date: 20141031
  Receipt Date: 20141031
  Transmission Date: 20150529
  Serious: Yes (Other)
  Sender: FDA-Public Use
  Company Number: PHEH2014US021491

PATIENT
  Sex: Female

DRUGS (4)
  1. VIVELLE DOT [Suspect]
     Active Substance: ESTRADIOL
     Dosage: UNK
     Route: 062
  2. VIVELLE DOT [Suspect]
     Active Substance: ESTRADIOL
     Indication: PRODUCT USED FOR UNKNOWN INDICATION
     Dosage: 0.037 MG, UNK
     Route: 062
  3. MINIVELLE [Suspect]
     Active Substance: ESTRADIOL
     Indication: PRODUCT USED FOR UNKNOWN INDICATION
     Dosage: 0.037 MG, UNK
     Route: 065
  4. LISINOPRIL. [Suspect]
     Active Substance: LISINOPRIL
     Indication: PRODUCT USED FOR UNKNOWN INDICATION
     Dosage: UNK
     Route: 065

REACTIONS (4)
  - Cerebrovascular accident [Unknown]
  - Blood pressure abnormal [Unknown]
  - Discomfort [Unknown]
  - Dry skin [Unknown]
